FAERS Safety Report 5647289-9 (Version None)
Quarter: 2008Q1

REPORT INFORMATION
  Report Type: 
  Country: None (occurrence: None)
  Receive Date: 20080131
  Receipt Date: 20071203
  Transmission Date: 20080703
  Serious: No
  Sender: FDA-Public Use
  Company Number: 163-21880-07120188

PATIENT
  Age: 82 Year
  Sex: Male

DRUGS (4)
  1. REVLIMID [Suspect]
     Indication: MULTIPLE MYELOMA
     Dosage: 2.5 MG, 1 IN 2 D, ORAL ; 5-10MG, DAILY, ORAL
     Route: 048
     Dates: start: 20070306, end: 20070501
  2. REVLIMID [Suspect]
     Indication: MYELODYSPLASTIC SYNDROME
     Dosage: 2.5 MG, 1 IN 2 D, ORAL ; 5-10MG, DAILY, ORAL
     Route: 048
     Dates: start: 20070306, end: 20070501
  3. REVLIMID [Suspect]
     Indication: MULTIPLE MYELOMA
     Dosage: 2.5 MG, 1 IN 2 D, ORAL ; 5-10MG, DAILY, ORAL
     Route: 048
     Dates: start: 20070531
  4. REVLIMID [Suspect]
     Indication: MYELODYSPLASTIC SYNDROME
     Dosage: 2.5 MG, 1 IN 2 D, ORAL ; 5-10MG, DAILY, ORAL
     Route: 048
     Dates: start: 20070531

REACTIONS (2)
  - OEDEMA PERIPHERAL [None]
  - RASH [None]
